FAERS Safety Report 21012169 (Version 1)
Quarter: 2022Q2

REPORT INFORMATION
  Report Type: Spontaneous
  Country: US (occurrence: US)
  Receive Date: 20220627
  Receipt Date: 20220627
  Transmission Date: 20220721
  Serious: No
  Sender: FDA-Public Use
  Company Number: US-BAYER-2022A088051

PATIENT
  Age: 63 Year
  Sex: Female

DRUGS (1)
  1. MIRALAX [Suspect]
     Active Substance: POLYETHYLENE GLYCOL 3350
     Indication: Colonoscopy
     Dosage: MIXED THE HALF OF BOTTLE INTO 32OZ OF GATORADE WITH MAGNESIUM CITRATE DOSE
     Route: 048
     Dates: start: 20220623

REACTIONS (2)
  - Off label use [Not Recovered/Not Resolved]
  - Product prescribing issue [Unknown]
